FAERS Safety Report 8585513-3 (Version None)
Quarter: 2012Q3

REPORT INFORMATION
  Report Type: 
  Country: None (occurrence: None)
  Receive Date: 20120810
  Receipt Date: 20120806
  Transmission Date: 20120928
  Serious: Yes (Other)
  Sender: FDA-Public Use
  Company Number: JP-SANOFI-AVENTIS-2012SA052642

PATIENT

DRUGS (3)
  1. DOCETAXEL [Suspect]
     Route: 065
     Dates: start: 20090101
  2. FLUOROURACIL [Suspect]
     Route: 065
     Dates: start: 20090101
  3. CISPLATIN [Suspect]
     Route: 065
     Dates: start: 20090101

REACTIONS (1)
  - FALL [None]
